FAERS Safety Report 5657895-3 (Version None)
Quarter: 2008Q1

REPORT INFORMATION
  Report Type: 
  Country: None (occurrence: None)
  Receive Date: 20080305
  Receipt Date: 20080218
  Transmission Date: 20080703
  Serious: Yes (Other)
  Sender: FDA-Public Use
  Company Number: DSA_31364_2008

PATIENT
  Age: 53 Year
  Sex: Female

DRUGS (1)
  1. TILDIEM SR - DILTIAZEM HYDROCHLORIDE 120 MG [Suspect]
     Indication: HYPERTENSION
     Dosage: (120 MG QD ORAL)
     Route: 048
     Dates: start: 20060907, end: 20080117

REACTIONS (4)
  - BLOOD PRESSURE INCREASED [None]
  - FEELING ABNORMAL [None]
  - MEDICATION RESIDUE [None]
  - PHARMACEUTICAL PRODUCT COMPLAINT [None]
